FAERS Safety Report 9916717 (Version 1)
Quarter: 2014Q1

REPORT INFORMATION
  Report Type: Spontaneous
  Country: CL (occurrence: CL)
  Receive Date: 20140221
  Receipt Date: 20140221
  Transmission Date: 20141002
  Serious: Yes (Other)
  Sender: FDA-Public Use
  Company Number: CL-PFIZER INC-2014050571

PATIENT
  Age: 99 Year
  Sex: Female

DRUGS (2)
  1. XALATAN [Suspect]
     Indication: GLAUCOMA
     Dosage: UNK
     Route: 047
  2. TIMOLOL [Concomitant]

REACTIONS (2)
  - Bronchitis [Not Recovered/Not Resolved]
  - Bedridden [Not Recovered/Not Resolved]
